FAERS Safety Report 4473606-1 (Version None)
Quarter: 2004Q4

REPORT INFORMATION
  Report Type: 
  Country: None (occurrence: None)
  Receive Date: 20040909
  Receipt Date: 20040706
  Transmission Date: 20050328
  Serious: Yes (Hospitalization)
  Sender: FDA-Public Use
  Company Number: F03200400080

PATIENT
  Age: 31 Year
  Sex: Female
  Weight: 81.466 kg

DRUGS (9)
  1. ELOXATIN [Suspect]
     Indication: COLON CANCER METASTATIC
     Dosage: 50 MH/M2 Q2W - INTRAVENOUS NOS
     Route: 042
     Dates: start: 20040519, end: 20040519
  2. LEUCOVORIN CALCIUM [Suspect]
     Indication: COLON CANCER METASTATIC
     Dosage: 400 MG/M2 Q2W - INTRAVENOUS NOS
     Route: 042
     Dates: start: 20040526, end: 20040526
  3. FLUOROURACIL [Suspect]
     Indication: COLON CANCER METASTATIC
     Dosage: 400 MGH/M2 AND 1360 MG/M2 - INTRAVENOUS NOS
     Route: 042
     Dates: start: 20040526, end: 20040526
  4. C225 - SOLUTION - 250 MG/M2 [Suspect]
     Indication: COLON CANCER METASTATIC
     Dosage: SEE IMAGE
     Route: 042
     Dates: start: 20040526, end: 20040526
  5. PROCHLORPERAZINE EDISYLATE [Concomitant]
  6. WARFARIN SODIUM [Concomitant]
  7. MORPHINE SULFATE [Concomitant]
  8. POTASSIUM CHLORIDE [Concomitant]
  9. VITAMINS [Concomitant]

REACTIONS (4)
  - FEBRILE NEUTROPENIA [None]
  - HEADACHE [None]
  - PNEUMONIA [None]
  - WHITE BLOOD CELL COUNT DECREASED [None]
